FAERS Safety Report 10032392 (Version 3)
Quarter: 2014Q3

REPORT INFORMATION
  Report Type: Spontaneous
  Country: US (occurrence: US)
  Receive Date: 20140324
  Receipt Date: 20140926
  Transmission Date: 20150326
  Serious: Yes (Life-Threatening, Hospitalization)
  Sender: FDA-Public Use
  Company Number: US-BAYER-2014-040286

PATIENT
  Age: 24 Year
  Sex: Female

DRUGS (1)
  1. MIRENA [Suspect]
     Active Substance: LEVONORGESTREL
     Indication: CONTRACEPTION
     Dosage: 20 MCG/24HR, CONT
     Route: 015
     Dates: start: 20070530, end: 20100401

REACTIONS (11)
  - Stress [None]
  - Uterine perforation [None]
  - Uterine fibrosis [None]
  - General physical health deterioration [None]
  - Anxiety [None]
  - Injury [None]
  - Ovarian cyst [None]
  - Pelvic pain [None]
  - Abdominal pain lower [None]
  - Anhedonia [None]
  - Scar pain [None]

NARRATIVE: CASE EVENT DATE: 201004
